FAERS Safety Report 25010167 (Version 1)
Quarter: 2025Q1

REPORT INFORMATION
  Report Type: Spontaneous
  Country: CN (occurrence: CN)
  Receive Date: 20250225
  Receipt Date: 20250225
  Transmission Date: 20250408
  Serious: Yes (Other)
  Sender: PFIZER
  Company Number: CN-PFIZER INC-PV202500021251

PATIENT
  Age: 11 Year
  Sex: Male
  Weight: 34 kg

DRUGS (4)
  1. CYTARABINE [Suspect]
     Active Substance: CYTARABINE
     Indication: Chemotherapy
     Dosage: 82 MG, 1X/DAY
     Route: 041
     Dates: start: 20241227, end: 20241230
  2. CYTARABINE [Suspect]
     Active Substance: CYTARABINE
     Dosage: 82 MG, 1X/DAY
     Route: 041
     Dates: start: 20250103, end: 20250106
  3. MERCAPTOPURINE [Suspect]
     Active Substance: MERCAPTOPURINE
     Indication: Chemotherapy
     Dosage: 50 MG, 1X/DAY
     Route: 048
     Dates: start: 20241225, end: 20250108
  4. CYCLOPHOSPHAMIDE [Suspect]
     Active Substance: CYCLOPHOSPHAMIDE
     Indication: Chemotherapy
     Dosage: 1.10 G, 1X/DAY
     Route: 041
     Dates: start: 20241225, end: 20241225

REACTIONS (4)
  - Myelosuppression [Recovering/Resolving]
  - Hepatic enzyme increased [Recovering/Resolving]
  - Protein total decreased [Unknown]
  - Blood albumin decreased [Unknown]

NARRATIVE: CASE EVENT DATE: 20250107
